FAERS Safety Report 6031559-9 (Version None)
Quarter: 2009Q1

REPORT INFORMATION
  Report Type: 
  Country: None (occurrence: None)
  Receive Date: 20090108
  Receipt Date: 20081224
  Transmission Date: 20090719
  Serious: Yes (Hospitalization, Other)
  Sender: FDA-Public Use
  Company Number: US-PFIZER INC-2008099730

PATIENT
  Sex: Female
  Weight: 104.31 kg

DRUGS (6)
  1. SUTENT [Suspect]
     Indication: METASTATIC RENAL CELL CARCINOMA
     Dosage: 50 MG, UNK
     Dates: start: 20080612, end: 20080824
  2. CHLORTHALIDONE [Concomitant]
     Dosage: 50 MG, ONE TO TWO EVERY WEEK
  3. HYDROCHLOROTHIAZIDE [Concomitant]
     Dosage: 25 MG, 1X/DAY
  4. AVAPRO [Concomitant]
     Dosage: 30 MG, 1X/DAY
  5. TYLENOL (CAPLET) [Concomitant]
     Dosage: FOUR TO SIX PER DAY
  6. GLUCOSAMINE W/CHONDROITIN SULFATES [Concomitant]
     Dosage: UNK

REACTIONS (2)
  - ASTHENIA [None]
  - GAIT DISTURBANCE [None]
